FAERS Safety Report 22214409 (Version 1)
Quarter: 2023Q2

REPORT INFORMATION
  Report Type: Spontaneous
  Country: GB (occurrence: GB)
  Receive Date: 20230414
  Receipt Date: 20230414
  Transmission Date: 20230722
  Serious: Yes (Disabling, Other)
  Sender: FDA-Public Use
  Company Number: GB-Zentiva-2022-ZT-000819

PATIENT
  Age: 87 Year
  Sex: Female

DRUGS (3)
  1. BUPRENORPHINE [Suspect]
     Active Substance: BUPRENORPHINE
     Indication: Cancer pain
     Dosage: 1 DOSAGE FORM (5 UG/H)
     Route: 003
     Dates: start: 20211201, end: 20211208
  2. BUPRENORPHINE [Suspect]
     Active Substance: BUPRENORPHINE
     Dosage: 2 DOSAGE FORM (5 UG/H)
     Route: 003
     Dates: start: 20211215, end: 20211215
  3. BUPRENORPHINE [Suspect]
     Active Substance: BUPRENORPHINE
     Indication: Cancer pain
     Dosage: 1 DOSAGE FORM (10 UG/H)
     Route: 003
     Dates: start: 20211222

REACTIONS (3)
  - Abnormal behaviour [Not Recovered/Not Resolved]
  - Irregular sleep wake rhythm disorder [Not Recovered/Not Resolved]
  - Somnolence [Not Recovered/Not Resolved]

NARRATIVE: CASE EVENT DATE: 20211222
